FAERS Safety Report 7273995-9 (Version None)
Quarter: 2011Q1

REPORT INFORMATION
  Report Type: 
  Country: None (occurrence: None)
  Receive Date: 20110203
  Receipt Date: 20110127
  Transmission Date: 20110831
  Serious: Yes (Hospitalization, Other)
  Sender: FDA-Public Use
  Company Number: US-GILEAD-2011-0035466

PATIENT
  Sex: Female
  Weight: 65.376 kg

DRUGS (4)
  1. LETAIRIS [Suspect]
     Indication: PULMONARY ARTERIAL HYPERTENSION
     Route: 048
     Dates: start: 20090204, end: 20101228
  2. NEXIUM [Concomitant]
     Indication: UNEVALUABLE EVENT
  3. POTASSIUM CHLORIDE [Concomitant]
     Indication: UNEVALUABLE EVENT
  4. LASIX [Concomitant]
     Indication: UNEVALUABLE EVENT

REACTIONS (1)
  - DISEASE PROGRESSION [None]
